FAERS Safety Report 15105532 (Version 1)
Quarter: 2018Q3

REPORT INFORMATION
  Report Type: Spontaneous
  Country: US (occurrence: US)
  Receive Date: 20180704
  Receipt Date: 20180704
  Transmission Date: 20181010
  Serious: No
  Sender: FDA-Public Use
  Company Number: US-BIOGEN-2015BI003724

PATIENT
  Age: 46 Year
  Sex: Female

DRUGS (4)
  1. PLEGRIDY [Suspect]
     Active Substance: PEGINTERFERON BETA-1A
     Route: 058
  2. CELLCEPT [Concomitant]
     Active Substance: MYCOPHENOLATE MOFETIL\MYCOPHENOLATE MOFETIL HYDROCHLORIDE
     Indication: MULTIPLE SCLEROSIS
     Route: 065
  3. PLEGRIDY [Suspect]
     Active Substance: PEGINTERFERON BETA-1A
     Route: 058
     Dates: start: 20141229
  4. PLEGRIDY [Suspect]
     Active Substance: PEGINTERFERON BETA-1A
     Indication: MULTIPLE SCLEROSIS
     Route: 058
     Dates: start: 20141222

REACTIONS (10)
  - Coagulopathy [Not Recovered/Not Resolved]
  - Cough [Not Recovered/Not Resolved]
  - Prescribed underdose [Recovered/Resolved]
  - Menorrhagia [Recovered/Resolved]
  - Influenza [Not Recovered/Not Resolved]
  - Back pain [Recovered/Resolved]
  - Menstrual disorder [Recovered/Resolved]
  - Dehydration [Recovered/Resolved]
  - Mobility decreased [Unknown]
  - Influenza like illness [Recovered/Resolved]

NARRATIVE: CASE EVENT DATE: 20141222
